FAERS Safety Report 12619338 (Version 8)
Quarter: 2020Q1

REPORT INFORMATION
  Report Type: Spontaneous
  Country: FR (occurrence: FR)
  Receive Date: 20160803
  Receipt Date: 20200113
  Transmission Date: 20200409
  Serious: Yes (Life-Threatening, Hospitalization, Other)
  Sender: FDA-Public Use
  Company Number: FR-009507513-1604FRA015392

PATIENT
  Age: 80 Year
  Sex: Male
  Weight: 93 kg

DRUGS (5)
  1. VALSARTAN. [Concomitant]
     Active Substance: VALSARTAN
     Dosage: 20 MG, QD
     Dates: start: 20130102
  2. FUROSEMIDE. [Concomitant]
     Active Substance: FUROSEMIDE
     Dosage: 20 MG, QD
     Dates: start: 20130102
  3. HARVONI [Suspect]
     Active Substance: LEDIPASVIR\SOFOSBUVIR
     Indication: HEPATITIS C
     Dosage: 90/400 MG, ONE PER DAY
     Route: 048
     Dates: start: 20151008, end: 20151231
  4. REBETOL [Suspect]
     Active Substance: RIBAVIRIN
     Indication: HEPATITIS C
     Dosage: 1200 MG, EVERY 1 DAY
     Route: 048
     Dates: start: 20151008, end: 20151231
  5. BISOPROLOL [Concomitant]
     Active Substance: BISOPROLOL
     Dosage: 10 MG, QD
     Dates: start: 20120726

REACTIONS (9)
  - Urinary tract infection [Unknown]
  - Interstitial lung disease [Unknown]
  - Hepatocellular carcinoma [Unknown]
  - Cardiac failure [Not Recovered/Not Resolved]
  - Bronchopneumopathy [Recovered/Resolved]
  - Atrial fibrillation [Recovered/Resolved with Sequelae]
  - Acute kidney injury [Not Recovered/Not Resolved]
  - Cardiac failure [Recovered/Resolved with Sequelae]
  - Acute kidney injury [Unknown]

NARRATIVE: CASE EVENT DATE: 2016
